FAERS Safety Report 12729072 (Version 1)
Quarter: 2016Q3

REPORT INFORMATION
  Report Type: Spontaneous
  Country: US (occurrence: US)
  Receive Date: 20160908
  Receipt Date: 20160908
  Transmission Date: 20161109
  Serious: Yes (Life-Threatening, Other)
  Sender: FDA-Public Use
  Company Number: None

PATIENT
  Age: 55 Year
  Sex: Male
  Weight: 90.9 kg

DRUGS (5)
  1. CARVEDILOL. [Concomitant]
     Active Substance: CARVEDILOL
  2. ASPIRIN. [Concomitant]
     Active Substance: ASPIRIN
  3. AMLODIPINE [Concomitant]
     Active Substance: AMLODIPINE BESYLATE
  4. DGPI-SPEC NOLIDO LOTION (BACLOFEN\CYCLOBENZAPRINE\DICLOFENAC\GABAPENTIN) [Suspect]
     Active Substance: BACLOFEN\CYCLOBENZAPRINE\DICLOFENAC\GABAPENTIN
     Indication: NEUROPATHY PERIPHERAL
     Dosage: OTHER STRENGTH:;OTHER DOSE:BOTTLE;OTHER FREQUENCY:;OTHER ROUTE:
     Route: 061
     Dates: start: 20160726, end: 20160824
  5. PROPAFENONE. [Concomitant]
     Active Substance: PROPAFENONE

REACTIONS (1)
  - Product label issue [None]

NARRATIVE: CASE EVENT DATE: 20160823
